FAERS Safety Report 7553905-7 (Version None)
Quarter: 2011Q2

REPORT INFORMATION
  Report Type: 
  Country: None (occurrence: None)
  Receive Date: 20110617
  Receipt Date: 20110531
  Transmission Date: 20111010
  Serious: No
  Sender: FDA-Public Use
  Company Number: US-B.I. PHARMACEUTICALS,INC./RIDGEFIELD-2011-BP-08490BP

PATIENT
  Sex: Female
  Weight: 54.43 kg

DRUGS (9)
  1. POTASSIUM [Concomitant]
     Indication: HYPOTHYROIDISM
     Dosage: 20 MEQ
     Route: 048
  2. ZETIA [Concomitant]
     Dosage: 10 MG
     Route: 048
  3. PRADAXA [Suspect]
     Indication: ATRIAL FIBRILLATION
     Dosage: 300 MG
     Route: 048
     Dates: start: 20110201
  4. SIMVASTATIN [Concomitant]
     Indication: BLOOD CHOLESTEROL INCREASED
     Dosage: 40 MG
     Route: 048
  5. FUROSEMIDE [Concomitant]
     Indication: HYPOTHYROIDISM
     Dosage: 20 MG
     Route: 048
  6. LEVOTHYROXINE SODIUM [Concomitant]
     Indication: HYPOTHYROIDISM
     Dosage: 0.075 MG
     Route: 048
  7. ASPIRIN [Concomitant]
     Dosage: 81 MG
  8. LOSARTAN POTASSIUM [Concomitant]
     Dosage: 100 MG
     Route: 048
  9. SOTALOL HCL [Concomitant]
     Dosage: 80 MG
     Route: 048

REACTIONS (1)
  - FATIGUE [None]
